FAERS Safety Report 4980671-1 (Version None)
Quarter: 2006Q2

REPORT INFORMATION
  Report Type: 
  Country: None (occurrence: None)
  Receive Date: 20060424
  Receipt Date: 20050804
  Transmission Date: 20061013
  Serious: Yes (Death, Hospitalization, Other)
  Sender: FDA-Public Use
  Company Number: US-MERCK-0508USA01275

PATIENT
  Age: 75 Year
  Sex: Male
  Weight: 91 kg

DRUGS (5)
  1. VIOXX [Suspect]
     Indication: ARTHRITIS
     Route: 048
     Dates: start: 19990101, end: 20000906
  2. VIOXX [Suspect]
     Route: 048
     Dates: start: 20020426, end: 20031120
  3. VIOXX [Suspect]
     Route: 048
     Dates: start: 20001004, end: 20010131
  4. EXCEDRIN (MIGRAINE) [Concomitant]
     Route: 065
  5. TYLENOL (CAPLET) [Concomitant]
     Route: 065

REACTIONS (34)
  - ACUTE RESPIRATORY FAILURE [None]
  - ANAEMIA [None]
  - ANGINA PECTORIS [None]
  - ATRIAL FIBRILLATION [None]
  - BACK INJURY [None]
  - CARDIAC ARREST [None]
  - CARDIO-RESPIRATORY ARREST [None]
  - CEREBRAL HAEMORRHAGE [None]
  - CEREBROVASCULAR ACCIDENT [None]
  - CHRONIC OBSTRUCTIVE PULMONARY DISEASE [None]
  - COMA [None]
  - CORONARY ARTERY OCCLUSION [None]
  - DYSPNOEA EXERTIONAL [None]
  - GASTROINTESTINAL HAEMORRHAGE [None]
  - HERPES ZOSTER [None]
  - HYPERKALAEMIA [None]
  - INTERVERTEBRAL DISC PROTRUSION [None]
  - INTRACRANIAL ANEURYSM [None]
  - MYOCARDIAL INFARCTION [None]
  - MYOCARDIAL ISCHAEMIA [None]
  - MYOFASCIAL PAIN SYNDROME [None]
  - NECK PAIN [None]
  - ORGAN FAILURE [None]
  - OSTEOARTHRITIS [None]
  - PLASMA PROTEIN METABOLISM DISORDER [None]
  - PNEUMONIA [None]
  - POST LAMINECTOMY SYNDROME [None]
  - PULMONARY EMBOLISM [None]
  - RESPIRATORY FAILURE [None]
  - SPINAL COLUMN STENOSIS [None]
  - SPINAL OSTEOARTHRITIS [None]
  - SPONDYLOLISTHESIS [None]
  - THROMBOSIS [None]
  - URINARY TRACT INFECTION [None]
